FAERS Safety Report 4492030-9 (Version None)
Quarter: 2004Q4

REPORT INFORMATION
  Report Type: 
  Country: None (occurrence: None)
  Receive Date: 20041029
  Receipt Date: 20041021
  Transmission Date: 20050328
  Serious: Yes (Other)
  Sender: FDA-Public Use
  Company Number: GBWYE130821OCT04

PATIENT
  Age: 39 Year
  Sex: Female

DRUGS (2)
  1. EFFEXOR [Suspect]
     Indication: DEPRESSION
     Dosage: SEE IMAGE
     Route: 048
  2. ZOPICLONE (ZOPICLONE) [Concomitant]

REACTIONS (4)
  - BACK PAIN [None]
  - DRUG WITHDRAWAL SYNDROME [None]
  - MIGRAINE [None]
  - NECK PAIN [None]
